FAERS Safety Report 9664299 (Version 2)
Quarter: 2013Q4

REPORT INFORMATION
  Report Type: Spontaneous
  Country: US (occurrence: US)
  Receive Date: 20131101
  Receipt Date: 20131101
  Transmission Date: 20140711
  Serious: Yes (Life-Threatening, Hospitalization, Other)
  Sender: FDA-Public Use
  Company Number: US-009507513-1206USA00434

PATIENT
  Age: 6 Year
  Sex: Female
  Weight: 19 kg

DRUGS (2)
  1. ELAVIL (MADE BY MERCK, MARKETED BY ZENECA) [Suspect]
     Indication: SLEEP DISORDER
     Dosage: 3 DF, HS, DISPENCED MEDICATIONS  100 MG X 3,  FOR TOTAL OF 15 MG/KG NIGHTLY, FOR A MONTH
     Route: 048
  2. GUANFACINE HYDROCHLORIDE [Concomitant]
     Dosage: 1 MG EACH MORNING AND 0.5 MG AFTER LUNCH

REACTIONS (4)
  - Grand mal convulsion [Recovered/Resolved]
  - Overdose [Unknown]
  - Drug dispensing error [Unknown]
  - Vomiting [Unknown]
